FAERS Safety Report 5723508-5 (Version None)
Quarter: 2008Q2

REPORT INFORMATION
  Report Type: 
  Country: None (occurrence: None)
  Receive Date: 20080424
  Receipt Date: 20080417
  Transmission Date: 20081010
  Serious: Yes (Death, Other)
  Sender: FDA-Public Use
  Company Number: GXKR2008ZW03711

PATIENT

DRUGS (5)
  1. SULFAMETHOXAZOLE AND TRIMETHOPRIM [Suspect]
  2. ZIDOVUDINE [Suspect]
     Indication: HIV INFECTION
  3. LAMIVUDINE [Concomitant]
  4. TENOFOVIR DISOPROXIL FUMARATE [Concomitant]
  5. STAVUDINE [Concomitant]

REACTIONS (2)
  - ANAEMIA [None]
  - RENAL FAILURE ACUTE [None]
